FAERS Safety Report 18517442 (Version 1)
Quarter: 2020Q4

REPORT INFORMATION
  Report Type: Spontaneous
  Country: US (occurrence: US)
  Receive Date: 20201118
  Receipt Date: 20201118
  Transmission Date: 20210114
  Serious: No
  Sender: FDA-Public Use
  Company Number: US-BAYER-2020-246262

PATIENT
  Age: 90 Year
  Sex: Male

DRUGS (3)
  1. CLARITIN [Suspect]
     Active Substance: LORATADINE
     Indication: NASAL DECONGESTION THERAPY
     Dosage: 1 DF, ONCE
     Dates: start: 20201110, end: 20201110
  2. CENTRUM VITAMINTS [Concomitant]
     Dosage: UNK
  3. ATENO [Concomitant]
     Dosage: UNK

REACTIONS (1)
  - Product use in unapproved indication [Unknown]

NARRATIVE: CASE EVENT DATE: 20201110
